FAERS Safety Report 10204643 (Version 1)
Quarter: 2014Q2

REPORT INFORMATION
  Report Type: Spontaneous
  Country: CZ (occurrence: None)
  Receive Date: 20140527
  Receipt Date: 20140527
  Transmission Date: 20141212
  Serious: Yes (Other)
  Sender: FDA-Public Use
  Company Number: SYM-2014-21095

PATIENT
  Age: 82 Year
  Sex: Female

DRUGS (6)
  1. WELLBUTRIN XR (BUPROPION HYDROCHLORIDE) (TABLET-EXTENDED RELEASE) (BUPROPION HYDROCHLORIDE) [Suspect]
     Indication: DEPRESSION
     Route: 048
     Dates: start: 20131219, end: 20140117
  2. ACETYLSALICYLIC ACID (ACETYLSALICYLIC ACID) [Concomitant]
  3. NEBIVOLOL HYDROCHLORIDE (NEBIVOLOL HYDROCHLORIDE) [Concomitant]
  4. TORASEMIDE (TORASEMIDE) [Concomitant]
  5. TRAZODONE HYDROCHLORIDE (TRAZODONE HYDROCHLORIDE) [Concomitant]
  6. LEKOVIT CA (COLECALCIFEROL, CALCIUM CARBONATE) [Concomitant]

REACTIONS (7)
  - Erythema [None]
  - Rash pruritic [None]
  - Thrombocytopenia [None]
  - Blood creatinine increased [None]
  - Leukocytosis [None]
  - C-reactive protein increased [None]
  - Rash macular [None]
